FAERS Safety Report 4587164-4 (Version None)
Quarter: 2005Q1

REPORT INFORMATION
  Report Type: 
  Country: None (occurrence: None)
  Receive Date: 20050218
  Receipt Date: 20050207
  Transmission Date: 20050727
  Serious: Yes (Disabling)
  Sender: FDA-Public Use
  Company Number: JP-JNJFOC-20050201402

PATIENT
  Age: 52 Year
  Sex: Male

DRUGS (2)
  1. TAVANIC [Suspect]
     Route: 049
     Dates: start: 20041115, end: 20041130
  2. TAVANIC [Suspect]
     Indication: CHRONIC SINUSITIS
     Route: 049
     Dates: start: 20041115, end: 20041130

REACTIONS (1)
  - DUPUYTREN'S CONTRACTURE [None]
